FAERS Safety Report 22128276 (Version 2)
Quarter: 2023Q2

REPORT INFORMATION
  Report Type: Spontaneous
  Country: IT (occurrence: IT)
  Receive Date: 20230323
  Receipt Date: 20230403
  Transmission Date: 20230721
  Serious: Yes (Hospitalization, Other)
  Sender: FDA-Public Use
  Company Number: IT-TEVA-2023-IT-2868430

PATIENT
  Age: 23 Year
  Sex: Male

DRUGS (6)
  1. ARIPIPRAZOLE [Suspect]
     Active Substance: ARIPIPRAZOLE
     Indication: Psychotic symptom
     Dosage: 20 MILLIGRAM DAILY; ONCE A DAY
     Route: 065
  2. ARIPIPRAZOLE [Suspect]
     Active Substance: ARIPIPRAZOLE
     Dosage: 10 MILLIGRAM DAILY; ONCE A DAY
     Route: 065
  3. PALIPERIDONE [Suspect]
     Active Substance: PALIPERIDONE
     Indication: Psychotic symptom
     Dosage: 9 MILLIGRAM DAILY; ONCE A DAY , ADDITIONAL INFO: ACTION TAKEN: DOSE WAS REDUCED BACK TO 6 MG/DAY AND
     Route: 065
  4. VALPROIC ACID [Concomitant]
     Active Substance: VALPROIC ACID
     Indication: Psychotic symptom
     Dosage: 500 MILLIGRAM DAILY; ONCE A DAY
     Route: 065
  5. VALPROIC ACID [Concomitant]
     Active Substance: VALPROIC ACID
     Dosage: 1000 MILLIGRAM DAILY; ONCE A DAY
     Route: 065
  6. DELORAZEPAM [Concomitant]
     Active Substance: DELORAZEPAM
     Indication: Psychotic symptom
     Dosage: 3 MILLIGRAM DAILY; ONCE A DAY
     Route: 065

REACTIONS (4)
  - Hiccups [Recovered/Resolved]
  - Dyspepsia [Recovered/Resolved]
  - Dystonia [Recovered/Resolved]
  - Muscle contractions involuntary [Recovered/Resolved]
